FAERS Safety Report 10562875 (Version 1)
Quarter: 2014Q4

REPORT INFORMATION
  Report Type: Spontaneous
  Country: US (occurrence: None)
  Receive Date: 20141103
  Receipt Date: 20141103
  Transmission Date: 20150529
  Serious: Yes (Life-Threatening, Hospitalization, Disabling)
  Sender: FDA-Public Use
  Company Number: None

PATIENT

DRUGS (1)
  1. REBIF [Suspect]
     Active Substance: INTERFERON BETA-1A
     Indication: MULTIPLE SCLEROSIS
     Dates: start: 201007, end: 201408

REACTIONS (4)
  - Suicidal ideation [None]
  - Depression [None]
  - Self esteem decreased [None]
  - Self injurious behaviour [None]

NARRATIVE: CASE EVENT DATE: 201408
